FAERS Safety Report 8039278-4 (Version None)
Quarter: 2012Q1

REPORT INFORMATION
  Report Type: 
  Country: None (occurrence: None)
  Receive Date: 20120111
  Receipt Date: 20111215
  Transmission Date: 20120608
  Serious: No
  Sender: FDA-Public Use
  Company Number: US-AMGEN-USASP2011067013

PATIENT
  Age: 62 Year
  Sex: Female

DRUGS (1)
  1. ENBREL [Suspect]
     Indication: RHEUMATOID ARTHRITIS
     Dosage: 50 MG, QWK
     Dates: start: 20070601

REACTIONS (6)
  - LUNG INFECTION [None]
  - OSTEOARTHRITIS [None]
  - FATIGUE [None]
  - BONE DISORDER [None]
  - DIARRHOEA [None]
  - INJECTION SITE PAIN [None]
